FAERS Safety Report 5706716-9 (Version None)
Quarter: 2008Q2

REPORT INFORMATION
  Report Type: 
  Country: None (occurrence: None)
  Receive Date: 20080416
  Receipt Date: 20080404
  Transmission Date: 20081010
  Serious: Yes (Hospitalization)
  Sender: FDA-Public Use
  Company Number: PHNU2005DE03140

PATIENT
  Age: 54 Year
  Sex: Male
  Weight: 79.9 kg

DRUGS (6)
  1. MYFORTIC [Suspect]
     Indication: RENAL TRANSPLANT
     Dosage: 180 MG DAILY
     Route: 048
     Dates: start: 20050811, end: 20050906
  2. MYFORTIC [Suspect]
     Dosage: 180 MG/DAY, QD
     Route: 048
     Dates: start: 20050926
  3. TAVANIC [Suspect]
     Route: 048
     Dates: start: 20050822, end: 20050823
  4. ZIENAM [Concomitant]
     Indication: CHOLECYSTITIS
     Dates: start: 20050901
  5. IMODIUM [Concomitant]
     Indication: DIARRHOEA
  6. VANCOMYCIN [Suspect]
     Indication: CHOLECYSTITIS
     Dates: start: 20050901

REACTIONS (10)
  - CHOLECYSTECTOMY [None]
  - CHOLECYSTITIS [None]
  - DEHYDRATION [None]
  - DIARRHOEA [None]
  - GASTRITIS [None]
  - PNEUMONIA [None]
  - PSEUDOMEMBRANOUS COLITIS [None]
  - RENAL DISORDER [None]
  - RENAL FAILURE ACUTE [None]
  - TENDON PAIN [None]
